FAERS Safety Report 5933790-7 (Version None)
Quarter: 2008Q4

REPORT INFORMATION
  Report Type: 
  Country: None (occurrence: None)
  Receive Date: 20081024
  Receipt Date: 20081014
  Transmission Date: 20090506
  Serious: Yes (Death)
  Sender: FDA-Public Use
  Company Number: GXKR2008GB07870

PATIENT
  Age: 58 Year
  Sex: Female
  Weight: 82 kg

DRUGS (7)
  1. CODEINE PHOSPHATE (NGX) (CODEINE PHOSPHATE) UNKNOWN [Suspect]
     Indication: DIARRHOEA
     Dosage: 30 MG, QID, ORAL; 60 MG, BID, ORAL
     Route: 048
     Dates: end: 20071028
  2. CODEINE PHOSPHATE (NGX) (CODEINE PHOSPHATE) UNKNOWN [Suspect]
     Indication: IRRITABLE BOWEL SYNDROME
     Dosage: 30 MG, QID, ORAL; 60 MG, BID, ORAL
     Route: 048
     Dates: end: 20071028
  3. CODEINE PHOSPHATE (NGX) (CODEINE PHOSPHATE) UNKNOWN [Suspect]
     Indication: DIARRHOEA
     Dosage: 30 MG, QID, ORAL; 60 MG, BID, ORAL
     Route: 048
     Dates: start: 20071029
  4. CODEINE PHOSPHATE (NGX) (CODEINE PHOSPHATE) UNKNOWN [Suspect]
     Indication: IRRITABLE BOWEL SYNDROME
     Dosage: 30 MG, QID, ORAL; 60 MG, BID, ORAL
     Route: 048
     Dates: start: 20071029
  5. OLANZAPINE [Suspect]
     Indication: BIPOLAR DISORDER
     Dosage: 15 MG, QD, ORAL
     Route: 048
  6. LEVOTHYROXINE SODIUM [Concomitant]
  7. VALPROIC ACID [Concomitant]

REACTIONS (4)
  - ASPHYXIA [None]
  - DRUG INTERACTION [None]
  - RESPIRATORY DEPRESSION [None]
  - SEDATION [None]
